FAERS Safety Report 9267934 (Version 1)
Quarter: 2013Q2

REPORT INFORMATION
  Report Type: Spontaneous
  Country: DK (occurrence: DK)
  Receive Date: 20130502
  Receipt Date: 20130502
  Transmission Date: 20140414
  Serious: Yes (Other)
  Sender: FDA-Public Use
  Company Number: DK-MYLANLABS-2013S1009091

PATIENT
  Age: 41 Year
  Sex: Female

DRUGS (5)
  1. LAMOTRIGINE [Suspect]
     Indication: DEPRESSION
     Dates: start: 201007
  2. LAMOTRIGINE [Suspect]
     Indication: DEPRESSION
     Dates: start: 20130130
  3. LAMOTRIGINE [Suspect]
     Indication: DEPRESSION
     Dates: start: 20130201
  4. MIRTAZAPINE [Concomitant]
     Indication: ANTIDEPRESSANT THERAPY
  5. LYRICA [Concomitant]
     Indication: PRODUCT USED FOR UNKNOWN INDICATION

REACTIONS (4)
  - Nausea [Not Recovered/Not Resolved]
  - Restlessness [Not Recovered/Not Resolved]
  - Disorientation [Not Recovered/Not Resolved]
  - Abulia [Not Recovered/Not Resolved]
